FAERS Safety Report 14919401 (Version 2)
Quarter: 2018Q2

REPORT INFORMATION
  Report Type: Spontaneous
  Country: US (occurrence: US)
  Receive Date: 20180521
  Receipt Date: 20180623
  Transmission Date: 20180711
  Serious: No
  Sender: FDA-Public Use
  Company Number: US-JNJFOC-20180504297

PATIENT
  Age: 80 Year
  Sex: Male
  Weight: 99.79 kg

DRUGS (27)
  1. DESOXIMETASONE. [Concomitant]
     Active Substance: DESOXIMETASONE
  2. TYLENOL [Concomitant]
     Active Substance: ACETAMINOPHEN
  3. GLUCOSAMINE AND CHONDROITIN SULFATE [Concomitant]
  4. TREMFYA [Suspect]
     Active Substance: GUSELKUMAB
     Indication: PSORIASIS
     Route: 058
     Dates: start: 20180426
  5. CLARITIN [Concomitant]
     Active Substance: LORATADINE
  6. ALBUTEROL. [Concomitant]
     Active Substance: ALBUTEROL
  7. DOCUSATE SODIUM. [Concomitant]
     Active Substance: DOCUSATE SODIUM
  8. TREMFYA [Suspect]
     Active Substance: GUSELKUMAB
     Indication: PSORIASIS
     Route: 058
     Dates: start: 20180322
  9. BENZONATATE. [Concomitant]
     Active Substance: BENZONATATE
  10. SYMBICORT [Concomitant]
     Active Substance: BUDESONIDE\FORMOTEROL FUMARATE DIHYDRATE
  11. ALBUTEROL SULFATE. [Concomitant]
     Active Substance: ALBUTEROL SULFATE
  12. SERNIVO [Concomitant]
     Active Substance: BETAMETHASONE DIPROPIONATE
  13. CIALIS [Concomitant]
     Active Substance: TADALAFIL
  14. TRAZODONE HYDROCHLORIDE. [Concomitant]
     Active Substance: TRAZODONE HYDROCHLORIDE
  15. FLUOROURACIL. [Concomitant]
     Active Substance: FLUOROURACIL
  16. ALFUZOSIN [Concomitant]
     Active Substance: ALFUZOSIN
  17. METOLAZONE. [Concomitant]
     Active Substance: METOLAZONE
  18. MIRALAX [Concomitant]
     Active Substance: POLYETHYLENE GLYCOL 3350
  19. ATORVASTATIN [Concomitant]
     Active Substance: ATORVASTATIN
  20. XYZAL [Concomitant]
     Active Substance: LEVOCETIRIZINE DIHYDROCHLORIDE
  21. TORSEMIDE. [Concomitant]
     Active Substance: TORSEMIDE
  22. BACITRACIN W/NEOMYCIN/POLYMYXIN B [Concomitant]
     Active Substance: BACITRACIN\NEOMYCIN\POLYMYXIN B
  23. BETAMETHASONE. [Concomitant]
     Active Substance: BETAMETHASONE
  24. CLOBETASOL [Concomitant]
     Active Substance: CLOBETASOL
  25. GLUCOSAMINE SULFATE [Concomitant]
     Active Substance: GLUCOSAMINE SULFATE
  26. ENSTILAR [Concomitant]
     Active Substance: BETAMETHASONE DIPROPIONATE\CALCIPOTRIENE HYDRATE
  27. BETAMETHASONE DIPROPIONATE. [Concomitant]
     Active Substance: BETAMETHASONE DIPROPIONATE

REACTIONS (2)
  - Rash [Recovered/Resolved]
  - Urticaria [Recovered/Resolved]

NARRATIVE: CASE EVENT DATE: 20180430
